FAERS Safety Report 4518519-1 (Version None)
Quarter: 2004Q4

REPORT INFORMATION
  Report Type: 
  Country: None (occurrence: None)
  Receive Date: 20041201
  Receipt Date: 20041115
  Transmission Date: 20050328
  Serious: Yes (Hospitalization)
  Sender: FDA-Public Use
  Company Number: 203624

PATIENT
  Age: 74 Year
  Sex: Male

DRUGS (15)
  1. AVONEX [Suspect]
     Indication: MULTIPLE SCLEROSIS
     Dosage: SEE IMAGE
     Route: 030
     Dates: start: 19990101, end: 20040401
  2. AVONEX [Suspect]
     Indication: MULTIPLE SCLEROSIS
     Dosage: SEE IMAGE
     Route: 030
     Dates: start: 20040401
  3. FOLGARD [Concomitant]
  4. AVAPRO [Concomitant]
  5. SPIRONOLACTONE [Concomitant]
  6. NORVASC [Concomitant]
  7. CARDURA [Concomitant]
  8. ZOCOR [Concomitant]
  9. SOLU-MEDROL [Concomitant]
  10. RITALIN [Concomitant]
  11. LACTULOSE [Concomitant]
  12. AVODART [Concomitant]
  13. VALIUM [Concomitant]
  14. BACLOFEN [Concomitant]
  15. DETROL [Concomitant]

REACTIONS (2)
  - NEUROGENIC BLADDER [None]
  - RENAL CELL CARCINOMA STAGE UNSPECIFIED [None]
